FAERS Safety Report 6089196-6 (Version None)
Quarter: 2009Q1

REPORT INFORMATION
  Report Type: 
  Country: None (occurrence: None)
  Receive Date: 20090219
  Receipt Date: 20090211
  Transmission Date: 20090719
  Serious: Yes (Other)
  Sender: FDA-Public Use
  Company Number: CHNY2009DE00652

PATIENT
  Age: 72 Year
  Sex: Female

DRUGS (8)
  1. NICOTINE [Suspect]
     Indication: SMOKING CESSATION THERAPY
     Dosage: 14 MG, QD, TRANSDERMAL
     Route: 062
     Dates: start: 20090117, end: 20090118
  2. ANTITUSSIVES (NO INGREDIENT/SUBSTANCES) [Concomitant]
  3. BERODUAL (FENOTEROL HYDROBROMIDE, IPRATROPIUM BROMIDE) [Concomitant]
  4. VIANI (FLUTICASONE PROPIONATE, SALMETEROL XINAFOATE) [Concomitant]
  5. BROMAZANIL (BROMAZEPAM) [Concomitant]
  6. OMEPRAZOL ^ACYFABRIK^ (OMEPRAZOLE) [Concomitant]
  7. SIMVASTATIN [Concomitant]
  8. L-THYROXIN ^HENNING BERLIN^ (LEVOTHYROXINE SODIUM) [Concomitant]

REACTIONS (2)
  - CARDIOVASCULAR DISORDER [None]
  - EMPHYSEMA [None]
